FAERS Safety Report 6390305-X (Version None)
Quarter: 2009Q4

REPORT INFORMATION
  Report Type: 
  Country: None (occurrence: None)
  Receive Date: 20091005
  Receipt Date: 20091005
  Transmission Date: 20100525
  Serious: Yes (Life-Threatening, Hospitalization)
  Sender: FDA-Public Use
  Company Number: None

PATIENT
  Age: 50 Year
  Sex: Male

DRUGS (1)
  1. CYCLOSPORINE [Suspect]
     Indication: APLASTIC ANAEMIA
     Dosage: 100 MG BID PO
     Route: 048
     Dates: start: 20090217, end: 20090805

REACTIONS (2)
  - HYPERTENSIVE CRISIS [None]
  - RENAL FAILURE ACUTE [None]
